FAERS Safety Report 7193646 (Version 3)
Quarter: 2014Q4

REPORT INFORMATION
  Report Type: Report from Study
  Country: JP (occurrence: JP)
  Receive Date: 20091130
  Receipt Date: 20141027
  Transmission Date: 20150529
  Serious: Yes (Hospitalization)
  Sender: FDA-Public Use
  Company Number: PHHY2009JP49950

PATIENT
  Age: 27 Year
  Sex: Male
  Weight: 45 kg

DRUGS (7)
  1. PROGRAF [Concomitant]
     Active Substance: TACROLIMUS\TACROLIMUS ANHYDROUS
     Indication: PRODUCT USED FOR UNKNOWN INDICATION
     Dosage: 1 MG, UNK
     Route: 048
     Dates: start: 19990911
  2. DESFERAL [Concomitant]
     Active Substance: DEFEROXAMINE MESYLATE
     Indication: PRODUCT USED FOR UNKNOWN INDICATION
     Route: 065
  3. ICL670A [Suspect]
     Active Substance: DEFERASIROX
     Indication: MYELODYSPLASTIC SYNDROME
     Dosage: 875 MG/DAY
     Route: 048
     Dates: start: 20091008, end: 20091015
  4. PREDONINE [Suspect]
     Active Substance: PREDNISOLONE\PREDNISOLONE ACETATE\PREDNISOLONE SODIUM SUCCINATE
     Dates: end: 20091209
  5. ALLELOCK [Concomitant]
     Active Substance: OLOPATADINE HYDROCHLORIDE
     Indication: PRODUCT USED FOR UNKNOWN INDICATION
     Route: 065
  6. FAMOTIDINE. [Concomitant]
     Active Substance: FAMOTIDINE
     Indication: PRODUCT USED FOR UNKNOWN INDICATION
     Route: 065
  7. PREDONINE [Suspect]
     Active Substance: PREDNISOLONE\PREDNISOLONE ACETATE\PREDNISOLONE SODIUM SUCCINATE
     Indication: STEVENS-JOHNSON SYNDROME
     Route: 065
     Dates: end: 20091019

REACTIONS (17)
  - C-reactive protein increased [Recovered/Resolved]
  - Oral mucosal erythema [Unknown]
  - Eyelid oedema [Unknown]
  - Rash [Recovering/Resolving]
  - Conjunctival hyperaemia [Unknown]
  - Keratitis [Unknown]
  - Erythema [Recovering/Resolving]
  - Corneal disorder [Unknown]
  - Erythema of eyelid [Unknown]
  - Blood bilirubin increased [Unknown]
  - White blood cell count increased [Not Recovered/Not Resolved]
  - Pyrexia [Recovering/Resolving]
  - Stevens-Johnson syndrome [Recovering/Resolving]
  - Blood creatinine increased [Unknown]
  - Oropharyngeal pain [Unknown]
  - Pharyngeal erythema [Unknown]
  - Blood urine present [Unknown]

NARRATIVE: CASE EVENT DATE: 20091016
